FAERS Safety Report 7441363-2 (Version None)
Quarter: 2011Q2

REPORT INFORMATION
  Report Type: 
  Country: None (occurrence: None)
  Receive Date: 20110428
  Receipt Date: 20110419
  Transmission Date: 20111010
  Serious: Yes (Hospitalization)
  Sender: FDA-Public Use
  Company Number: JP-ELI_LILLY_AND_COMPANY-JP201104005595

PATIENT
  Age: 75 Year
  Sex: Female

DRUGS (5)
  1. TAKEPRON [Concomitant]
     Indication: PROPHYLAXIS
     Dosage: 15 MG, QD
     Route: 048
     Dates: start: 20110408, end: 20110419
  2. MAGMITT [Concomitant]
     Indication: PROPHYLAXIS
     Dosage: 6 DF, QD
     Route: 048
     Dates: start: 20100831, end: 20110419
  3. SENNOSIDE [Concomitant]
     Indication: PROPHYLAXIS
     Dosage: 2 DF, QD
     Route: 048
     Dates: start: 20100831, end: 20110419
  4. BYETTA [Suspect]
     Indication: TYPE 2 DIABETES MELLITUS
     Dosage: 10 UG, QD
     Route: 058
     Dates: start: 20110210, end: 20110419
  5. DAIKENTYUTO [Concomitant]
     Indication: PROPHYLAXIS
     Dosage: 7.5 G, QD
     Route: 048
     Dates: start: 20100831, end: 20110419

REACTIONS (3)
  - OFF LABEL USE [None]
  - INTESTINAL OBSTRUCTION [None]
  - HYPOGLYCAEMIA [None]
